FAERS Safety Report 4618309-5 (Version None)
Quarter: 2005Q2

REPORT INFORMATION
  Report Type: 
  Country: None (occurrence: None)
  Receive Date: 20050310
  Receipt Date: 20040816
  Transmission Date: 20051028
  Serious: Yes (Hospitalization, Other)
  Sender: FDA-Public Use
  Company Number: 1-11774701

PATIENT
  Age: 17 Year
  Sex: Female

DRUGS (1)
  1. DYNACIN TABLETS 100MG [Suspect]
     Indication: ACNE
     Dosage: 100 MG PO BID
     Route: 048
     Dates: start: 20040727, end: 20040813

REACTIONS (2)
  - PRURITUS [None]
  - URTICARIA [None]
